FAERS Safety Report 9854052 (Version 1)
Quarter: 2014Q1

REPORT INFORMATION
  Report Type: Spontaneous
  Country: GB (occurrence: GB)
  Receive Date: 20140129
  Receipt Date: 20140129
  Transmission Date: 20141002
  Serious: Yes (Other)
  Sender: FDA-Public Use
  Company Number: GB-TEVA-459097ISR

PATIENT
  Sex: Male

DRUGS (3)
  1. TEVA LEVOTHYROXINE 100 MCG TABLETS [Suspect]
     Dates: start: 2009, end: 2010
  2. LEVOTHYROXINE [Suspect]
     Indication: HYPOTHYROIDISM
     Dosage: TAKEN ON ALTERNATE DAYS
     Dates: start: 2002
  3. LEVOTHYROXINE [Suspect]
     Dosage: TAKEN ON ALTERNATE DAYS
     Dates: start: 2002

REACTIONS (6)
  - Hyperthyroidism [Unknown]
  - Thyroid function test abnormal [Unknown]
  - Fatigue [Unknown]
  - Disturbance in attention [Unknown]
  - Myalgia [Unknown]
  - Product substitution issue [Unknown]
